FAERS Safety Report 5319249-9 (Version None)
Quarter: 2007Q2

REPORT INFORMATION
  Report Type: 
  Country: None (occurrence: None)
  Receive Date: 20070508
  Receipt Date: 20070504
  Transmission Date: 20071010
  Serious: Yes (Other)
  Sender: FDA-Public Use
  Company Number: AUWYE589707MAY07

PATIENT
  Age: 55 Year
  Sex: Female

DRUGS (2)
  1. VENLAFAXINE HCL [Suspect]
     Dosage: UNKNOWN
  2. OLANZAPINE [Concomitant]
     Indication: DEPRESSION
     Dosage: 2.5 MG DAILY
     Route: 048

REACTIONS (1)
  - ANGIOEDEMA [None]
